FAERS Safety Report 25186352 (Version 2)
Quarter: 2025Q4

REPORT INFORMATION
  Report Type: Spontaneous
  Country: US (occurrence: US)
  Receive Date: 20250410
  Receipt Date: 20251204
  Transmission Date: 20260118
  Serious: No
  Sender: SANOFI AVENTIS
  Company Number: US-SA-2025SA103600

PATIENT
  Age: 62 Year
  Sex: Male

DRUGS (15)
  1. DUPIXENT [Suspect]
     Active Substance: DUPILUMAB
     Indication: Dermatitis atopic
     Dosage: 300 MG, QOW
     Route: 058
  2. DUPIXENT [Suspect]
     Active Substance: DUPILUMAB
     Dosage: 300 MG, QOW
     Route: 058
     Dates: start: 20251117
  3. CARVEDILOL [Concomitant]
     Active Substance: CARVEDILOL
  4. CLONIDINE HYDROCHLORIDE [Concomitant]
     Active Substance: CLONIDINE HYDROCHLORIDE
  5. COLCHICINE [Concomitant]
     Active Substance: COLCHICINE
  6. FUROSEMIDE [Concomitant]
     Active Substance: FUROSEMIDE
  7. GLIPIZIDE [Concomitant]
     Active Substance: GLIPIZIDE
  8. HYDRALAZINE [Concomitant]
     Active Substance: HYDRALAZINE HYDROCHLORIDE
  9. INDOMETHACIN [Concomitant]
     Active Substance: INDOMETHACIN
  10. ISOSORBIDE [Concomitant]
     Active Substance: ISOSORBIDE
  11. LEVOTHYROXINE [Concomitant]
     Active Substance: LEVOTHYROXINE
  12. NITROGLYCERIN [Concomitant]
     Active Substance: NITROGLYCERIN
  13. POTASSIUM [Concomitant]
     Active Substance: POTASSIUM
  14. SIMVASTATIN [Concomitant]
     Active Substance: SIMVASTATIN
  15. WARFARIN SODIUM [Concomitant]
     Active Substance: WARFARIN SODIUM

REACTIONS (2)
  - Injection site pain [Unknown]
  - Injection site bruising [Not Recovered/Not Resolved]

NARRATIVE: CASE EVENT DATE: 20250101
